FAERS Safety Report 25690098 (Version 1)
Quarter: 2025Q3

REPORT INFORMATION
  Report Type: Spontaneous
  Country: US (occurrence: None)
  Receive Date: 20250815
  Receipt Date: 20250815
  Transmission Date: 20251021
  Serious: Yes (Other)
  Sender: FDA-CTU
  Company Number: None

PATIENT
  Age: 64 Year
  Sex: Male
  Weight: 74.7 kg

DRUGS (2)
  1. HERBALS [Suspect]
     Active Substance: HERBALS
     Dosage: FREQUENCY : DAILY;?
     Route: 048
  2. OXYCODONE [Suspect]
     Active Substance: OXYCODONE

REACTIONS (14)
  - Pain [None]
  - Product prescribing issue [None]
  - Victim of abuse [None]
  - Self-medication [None]
  - Respiratory disorder [None]
  - Drug withdrawal syndrome [None]
  - Drug dependence [None]
  - Anxiety [None]
  - Restlessness [None]
  - Nasal congestion [None]
  - Headache [None]
  - Nausea [None]
  - Pain [None]
  - Cough [None]

NARRATIVE: CASE EVENT DATE: 20250812
